FAERS Safety Report 8915776 (Version 1)
Quarter: 2012Q4

REPORT INFORMATION
  Report Type: 
  Country: US (occurrence: US)
  Receive Date: 20121119
  Receipt Date: 20121119
  Transmission Date: 20130627
  Serious: No
  Sender: FDA-Public Use
  Company Number: US-009507513-1211USA005316

PATIENT
  Age: 12 Year

DRUGS (2)
  1. CLARITIN REDITABS [Suspect]
     Indication: PRODUCT USED FOR UNKNOWN INDICATION
     Dosage: UNK, Unknown
     Route: 048
     Dates: start: 20120912
  2. CLARITIN REDITABS [Suspect]
     Dosage: 10 mg, Once
     Route: 048
     Dates: start: 20120913

REACTIONS (1)
  - Overdose [Unknown]
